FAERS Safety Report 11568089 (Version 1)
Quarter: 2015Q3

REPORT INFORMATION
  Report Type: Spontaneous
  Country: US (occurrence: US)
  Receive Date: 20150916
  Receipt Date: 20150916
  Transmission Date: 20151125
  Serious: No
  Sender: FDA-Public Use
  Company Number: US-ELI_LILLY_AND_COMPANY-US200908001691

PATIENT
  Sex: Female

DRUGS (4)
  1. FORTEO [Suspect]
     Active Substance: TERIPARATIDE
     Dosage: UNK, UNK
  2. FORTEO [Suspect]
     Active Substance: TERIPARATIDE
     Dosage: UNK, UNK
  3. FORTEO [Suspect]
     Active Substance: TERIPARATIDE
     Dosage: UNK, UNK
  4. FORTEO [Suspect]
     Active Substance: TERIPARATIDE

REACTIONS (9)
  - Injection site haemorrhage [Recovered/Resolved]
  - Gingivitis [Unknown]
  - Eye pain [Unknown]
  - Balance disorder [Unknown]
  - Jaw disorder [Unknown]
  - Injection site bruising [Recovered/Resolved]
  - Stress [Unknown]
  - Gingival pain [Unknown]
  - Headache [Unknown]

NARRATIVE: CASE EVENT DATE: 2009
